FAERS Safety Report 8604503-5 (Version None)
Quarter: 2012Q3

REPORT INFORMATION
  Report Type: 
  Country: None (occurrence: None)
  Receive Date: 20120820
  Receipt Date: 20120812
  Transmission Date: 20120928
  Serious: Yes (Other)
  Sender: FDA-Public Use
  Company Number: CA-JNJFOC-20120806638

PATIENT
  Sex: Female

DRUGS (1)
  1. STELARA [Suspect]
     Indication: PSORIASIS
     Dosage: FOR 8 MONTHS
     Route: 058

REACTIONS (2)
  - PUSTULAR PSORIASIS [None]
  - RESPIRATORY TRACT INFECTION VIRAL [None]
